FAERS Safety Report 8394811-8 (Version None)
Quarter: 2012Q2

REPORT INFORMATION
  Report Type: 
  Country: None (occurrence: None)
  Receive Date: 20120524
  Receipt Date: 20120511
  Transmission Date: 20120825
  Serious: Yes (Hospitalization)
  Sender: FDA-Public Use
  Company Number: UTC-018739

PATIENT
  Age: 28 Year
  Sex: Female
  Weight: 81.8 kg

DRUGS (2)
  1. TRACLEER [Concomitant]
  2. REMODULIN [Suspect]
     Indication: PULMONARY HYPERTENSION
     Dosage: 14.4 UG/KG (0.01 UG/KG, 1 IN 1 MIN),INTRAVENOUS
     Route: 042
     Dates: start: 20120411

REACTIONS (2)
  - WEIGHT INCREASED [None]
  - FLUID RETENTION [None]
